FAERS Safety Report 8483268-4 (Version None)
Quarter: 2012Q3

REPORT INFORMATION
  Report Type: 
  Country: None (occurrence: None)
  Receive Date: 20120702
  Receipt Date: 20120618
  Transmission Date: 20120928
  Serious: No
  Sender: FDA-Public Use
  Company Number: US-ASTRAZENECA-2012SE41210

PATIENT
  Age: 57 Year
  Sex: Female
  Weight: 79.4 kg

DRUGS (7)
  1. FLUCONAZOLE [Concomitant]
  2. ACCOLATE [Suspect]
     Indication: ASTHMA
     Dosage: GENERIC
     Route: 048
     Dates: start: 20120501
  3. NEXIUM [Suspect]
     Indication: GASTROOESOPHAGEAL REFLUX DISEASE
     Route: 048
  4. COUNTER MEDICATIONS [Concomitant]
  5. PROPRANOLOL [Concomitant]
  6. XANAX [Concomitant]
  7. ACCOLATE [Suspect]
     Route: 048

REACTIONS (10)
  - MUSCLE SPASMS [None]
  - RENAL IMPAIRMENT [None]
  - DEPRESSION [None]
  - ANXIETY [None]
  - HYPERHIDROSIS [None]
  - DYSPNOEA [None]
  - ROAD TRAFFIC ACCIDENT [None]
  - LIGAMENT RUPTURE [None]
  - LIMB DISCOMFORT [None]
  - OSTEOARTHRITIS [None]
